FAERS Safety Report 8502333-6 (Version None)
Quarter: 2012Q3

REPORT INFORMATION
  Report Type: 
  Country: None (occurrence: None)
  Receive Date: 20120711
  Receipt Date: 20120705
  Transmission Date: 20120928
  Serious: Yes (Other)
  Sender: FDA-Public Use
  Company Number: US-JNJFOC-20120703594

PATIENT
  Age: 70 Year
  Sex: Female

DRUGS (1)
  1. NICOTINE [Suspect]
     Indication: SMOKING CESSATION THERAPY
     Dosage: 100 COUNT BOX OF NICOTINE GUM ABOUT EVERY 2 WEEKS
     Route: 048

REACTIONS (5)
  - NICOTINE DEPENDENCE [None]
  - INTENTIONAL DRUG MISUSE [None]
  - ALOPECIA [None]
  - GASTRIC DISORDER [None]
  - DRUG ADMINISTRATION ERROR [None]
